FAERS Safety Report 7229040-4 (Version None)
Quarter: 2011Q1

REPORT INFORMATION
  Report Type: 
  Country: None (occurrence: None)
  Receive Date: 20110117
  Receipt Date: 20110112
  Transmission Date: 20110831
  Serious: Yes (Death)
  Sender: FDA-Public Use
  Company Number: PHEH2007US16439

PATIENT
  Sex: Male

DRUGS (2)
  1. COUMADIN [Concomitant]
  2. EXJADE [Suspect]
     Dosage: 500 MG, UNK

REACTIONS (1)
  - DEATH [None]
